FAERS Safety Report 11214047 (Version 1)
Quarter: 2015Q2

REPORT INFORMATION
  Report Type: Spontaneous
  Country: IR (occurrence: None)
  Receive Date: 20150622
  Receipt Date: 20150622
  Transmission Date: 20150821
  Serious: Yes (Life-Threatening, Disabling, Other)
  Sender: FDA-Public Use
  Company Number: None

PATIENT
  Age: 58 Year
  Sex: Female
  Weight: 190 kg

DRUGS (1)
  1. BELVIQ [Suspect]
     Active Substance: LORCASERIN HYDROCHLORIDE
     Indication: OBESITY
     Route: 048

REACTIONS (9)
  - Dizziness [None]
  - Respiratory disorder [None]
  - Syncope [None]
  - Delirium [None]
  - Pruritus [None]
  - Diarrhoea [None]
  - Swelling face [None]
  - Eye swelling [None]
  - Condition aggravated [None]
